FAERS Safety Report 6534732-6 (Version None)
Quarter: 2010Q1

REPORT INFORMATION
  Report Type: 
  Country: None (occurrence: None)
  Receive Date: 20100112
  Receipt Date: 20100105
  Transmission Date: 20100710
  Serious: Yes (Hospitalization)
  Sender: FDA-Public Use
  Company Number: ZA-ROCHE-676561

PATIENT
  Sex: Male
  Weight: 85.4 kg

DRUGS (5)
  1. BEVACIZUMAB [Suspect]
     Dosage: STOPPED FOR 28 DAYS
     Route: 065
     Dates: start: 20091202, end: 20091218
  2. TEMSIROLIMUS [Suspect]
     Dosage: DRUG STOPPED FOR 28 DAYS
     Route: 042
     Dates: start: 20091202, end: 20091218
  3. GLUCOPHAGE [Concomitant]
     Indication: DIABETES MELLITUS
     Dosage: 500 MG/ML
     Dates: start: 20080803
  4. CYMBALTA [Concomitant]
     Indication: BIPOLAR DISORDER
     Dates: start: 20080101
  5. SEROQUEL [Concomitant]
     Indication: BIPOLAR DISORDER
     Dates: start: 20080101

REACTIONS (1)
  - CHOLECYSTITIS ACUTE [None]
